FAERS Safety Report 4519854-3 (Version None)
Quarter: 2004Q4

REPORT INFORMATION
  Report Type: 
  Country: None (occurrence: None)
  Receive Date: 20041207
  Receipt Date: 20041129
  Transmission Date: 20050328
  Serious: Yes (Other)
  Sender: FDA-Public Use
  Company Number: US-JNJFOC-20041200308

PATIENT
  Age: 54 Year
  Sex: Male
  Weight: 82.56 kg

DRUGS (6)
  1. HALDOL [Suspect]
     Indication: BIPOLAR DISORDER
     Dosage: (5-10 MG)
     Route: 030
     Dates: start: 20031122, end: 20031128
  2. LITHIUM [Concomitant]
  3. EFFEXOR [Concomitant]
  4. RISPERDAL [Concomitant]
     Indication: UNEVALUABLE EVENT
     Route: 065
  5. TOPAMAX [Concomitant]
     Indication: UNEVALUABLE EVENT
     Route: 065
  6. KLONOPIN [Concomitant]

REACTIONS (5)
  - AGITATION [None]
  - AMNESIA [None]
  - DISTURBANCE IN ATTENTION [None]
  - NIGHTMARE [None]
  - SUICIDAL IDEATION [None]
